FAERS Safety Report 23573705 (Version 1)
Quarter: 2024Q1

REPORT INFORMATION
  Report Type: Spontaneous
  Country: US (occurrence: US)
  Receive Date: 20240228
  Receipt Date: 20240228
  Transmission Date: 20240410
  Serious: No
  Sender: FDA-Public Use
  Company Number: US-RK PHARMA, INC-20230300022

PATIENT

DRUGS (1)
  1. DOXEPIN HYDROCHLORIDE [Suspect]
     Active Substance: DOXEPIN HYDROCHLORIDE
     Indication: Headache
     Dosage: 3 MILLIGRAM, UNKNOWN
     Route: 048
     Dates: start: 2023

REACTIONS (1)
  - Therapeutic response decreased [Unknown]
